FAERS Safety Report 10264187 (Version 1)
Quarter: 2014Q2

REPORT INFORMATION
  Report Type: Spontaneous
  Country: US (occurrence: None)
  Receive Date: 20140624
  Receipt Date: 20140624
  Transmission Date: 20141212
  Serious: Yes (Other)
  Sender: FDA-Public Use
  Company Number: 001757778A

PATIENT
  Age: 31 Year
  Sex: Female

DRUGS (2)
  1. MEANINGFUL BEAUTY SKIN BRIGHTENING DECOLLETE AND NECK TREATMENT WITH SPF 15 [Suspect]
     Dosage: TWICE DAILY DERMAL
     Route: 061
     Dates: start: 20140211, end: 20140531
  2. MEANINGFUL BEAUTY ANTIOXIDENT DAY CREME SPF 20 [Suspect]
     Dates: start: 20140211, end: 20140531

REACTIONS (2)
  - Swelling face [None]
  - Rash [None]
